FAERS Safety Report 8050181-6 (Version None)
Quarter: 2012Q1

REPORT INFORMATION
  Report Type: 
  Country: None (occurrence: None)
  Receive Date: 20120117
  Receipt Date: 20120111
  Transmission Date: 20120608
  Serious: Yes (Other)
  Sender: FDA-Public Use
  Company Number: CA-MERCK-1201USA01477

PATIENT
  Age: 63 Year
  Sex: Male

DRUGS (2)
  1. TRUVADA [Concomitant]
     Route: 065
  2. ISENTRESS [Suspect]
     Route: 048

REACTIONS (3)
  - RASH ERYTHEMATOUS [None]
  - RASH GENERALISED [None]
  - PRURITUS [None]
